FAERS Safety Report 8610064-7 (Version None)
Quarter: 2012Q3

REPORT INFORMATION
  Report Type: 
  Country: None (occurrence: None)
  Receive Date: 20120822
  Receipt Date: 20120815
  Transmission Date: 20120928
  Serious: Yes (Hospitalization, Disabling)
  Sender: FDA-Public Use
  Company Number: CZ-AMGEN-CZESP2012052370

PATIENT
  Age: 66 Year
  Sex: Female

DRUGS (2)
  1. PREDNISONE TAB [Concomitant]
     Dosage: UNK
     Dates: start: 20120502
  2. ENBREL [Suspect]
     Indication: PSORIATIC ARTHROPATHY
     Dosage: 50 ML, UNK
     Route: 058
     Dates: start: 20090119, end: 20120305

REACTIONS (3)
  - BRONCHOPLEURAL FISTULA [None]
  - INFECTIOUS PLEURAL EFFUSION [None]
  - PNEUMOTHORAX [None]
